FAERS Safety Report 17534027 (Version 1)
Quarter: 2020Q1

REPORT INFORMATION
  Report Type: Spontaneous
  Country: RU (occurrence: RU)
  Receive Date: 20200312
  Receipt Date: 20200312
  Transmission Date: 20200409
  Serious: Yes (Other)
  Sender: FDA-Public Use
  Company Number: RU-INCYTE CORPORATION-2020IN001957

PATIENT

DRUGS (2)
  1. JAKAVI [Suspect]
     Active Substance: RUXOLITINIB
     Indication: ACUTE GRAFT VERSUS HOST DISEASE
     Dosage: 10 MG, BID
     Route: 065
  2. TACROLIMUS. [Concomitant]
     Active Substance: TACROLIMUS
     Indication: PRODUCT USED FOR UNKNOWN INDICATION
     Dosage: UNK
     Route: 065

REACTIONS (7)
  - Human herpesvirus 6 infection [Unknown]
  - Cytomegalovirus infection [Unknown]
  - Pneumonia acinetobacter [Unknown]
  - Sepsis [Unknown]
  - Product use in unapproved indication [Unknown]
  - Epstein-Barr virus infection [Unknown]
  - Respiratory failure [Unknown]
